FAERS Safety Report 17124571 (Version 1)
Quarter: 2019Q4

REPORT INFORMATION
  Report Type: Spontaneous
  Country: AT (occurrence: AT)
  Receive Date: 20191206
  Receipt Date: 20191206
  Transmission Date: 20200122
  Serious: Yes (Other)
  Sender: FDA-Public Use
  Company Number: AT-SEATTLE GENETICS-2019SGN04463

PATIENT
  Age: 70 Year
  Sex: Female

DRUGS (1)
  1. ADCETRIS [Suspect]
     Active Substance: BRENTUXIMAB VEDOTIN
     Indication: CUTANEOUS T-CELL LYMPHOMA
     Dosage: 1.2 MILLIGRAM
     Route: 065

REACTIONS (3)
  - Full blood count increased [Unknown]
  - Skin disorder [Unknown]
  - Cutaneous T-cell lymphoma [Unknown]
